FAERS Safety Report 21559103 (Version 3)
Quarter: 2022Q4

REPORT INFORMATION
  Report Type: Spontaneous
  Country: US (occurrence: US)
  Receive Date: 20221107
  Receipt Date: 20221228
  Transmission Date: 20230113
  Serious: Yes (Other)
  Sender: FDA-Public Use
  Company Number: US-JNJFOC-20221103612

PATIENT
  Age: 45 Year
  Sex: Female
  Weight: 74.456 kg

DRUGS (3)
  1. TYLENOL SINUS SEVERE [Suspect]
     Active Substance: ACETAMINOPHEN\GUAIFENESIN\PHENYLEPHRINE HYDROCHLORIDE
     Indication: Sinus disorder
     Dosage: TOOK 2 TABLETS ONCE
     Route: 065
     Dates: start: 20221027, end: 20221027
  2. TYLENOL SINUS SEVERE [Suspect]
     Active Substance: ACETAMINOPHEN\GUAIFENESIN\PHENYLEPHRINE HYDROCHLORIDE
     Indication: Headache
  3. TYLENOL SINUS SEVERE [Suspect]
     Active Substance: ACETAMINOPHEN\GUAIFENESIN\PHENYLEPHRINE HYDROCHLORIDE
     Indication: Nasal congestion

REACTIONS (4)
  - Blindness transient [Recovered/Resolved]
  - Facial paralysis [Recovered/Resolved]
  - Hypertension [Recovered/Resolved]
  - Nervous system disorder [Recovered/Resolved]

NARRATIVE: CASE EVENT DATE: 20221027
